FAERS Safety Report 8265435-8 (Version None)
Quarter: 2012Q2

REPORT INFORMATION
  Report Type: 
  Country: None (occurrence: None)
  Receive Date: 20120406
  Receipt Date: 20120330
  Transmission Date: 20120825
  Serious: Yes (Disabling, Other)
  Sender: FDA-Public Use
  Company Number: US-PFIZER INC-2012082743

PATIENT
  Sex: Female

DRUGS (2)
  1. GABAPENTIN [Suspect]
     Dosage: 800 MG, 3X/DAY (TID)
     Route: 048
  2. REMERON [Concomitant]
     Dosage: UNK

REACTIONS (1)
  - SCHIZOAFFECTIVE DISORDER [None]
